FAERS Safety Report 10313306 (Version 1)
Quarter: 2014Q3

REPORT INFORMATION
  Report Type: Spontaneous
  Country: US (occurrence: None)
  Receive Date: 20140716
  Receipt Date: 20140716
  Transmission Date: 20150326
  Serious: Yes (Death)
  Sender: FDA-Public Use
  Company Number: 2014US00678

PATIENT

DRUGS (7)
  1. NEOMYCIN (NEOMYCIN) [Suspect]
     Active Substance: NEOMYCIN
     Indication: INFECTION PROPHYLAXIS
  2. MITOMYCIN C [Suspect]
     Active Substance: MITOMYCIN
     Indication: THERAPEUTIC EMBOLISATION
  3. METRONIDAZOLE (METRONIDAZOLE) [Suspect]
     Active Substance: METRONIDAZOLE
     Indication: INFECTION PROPHYLAXIS
     Route: 048
  4. ERYTHROMYCIN (ERYTHROMYCIN) [Suspect]
     Active Substance: ERYTHROMYCIN
     Indication: INFECTION PROPHYLAXIS
  5. CISPLATIN (CISPLATIN) [Suspect]
     Active Substance: CISPLATIN
     Indication: THERAPEUTIC EMBOLISATION
  6. LEVOFLOXACIN (LEVOFLOXACIN) TABLET [Suspect]
     Active Substance: LEVOFLOXACIN
     Indication: INFECTION PROPHYLAXIS
     Route: 048
  7. DOXORUBICIN (DOXORUBICIN) [Suspect]
     Active Substance: DOXORUBICIN
     Indication: THERAPEUTIC EMBOLISATION

REACTIONS (1)
  - Liver abscess [None]
